FAERS Safety Report 21534400 (Version 1)
Quarter: 2022Q4

REPORT INFORMATION
  Report Type: Spontaneous
  Country: US (occurrence: US)
  Receive Date: 20221101
  Receipt Date: 20221101
  Transmission Date: 20230112
  Serious: No
  Sender: FDA-Public Use
  Company Number: US-LANNETT COMPANY, INC.-US-2022LAN000047

PATIENT
  Age: 36 Year

DRUGS (2)
  1. BUPRENORPHINE HYDROCHLORIDE\NALOXONE HYDROCHLORIDE [Suspect]
     Active Substance: BUPRENORPHINE HYDROCHLORIDE\NALOXONE HYDROCHLORIDE
     Indication: Dependence
     Dosage: 8/2 MILLIGRAM
     Route: 065
  2. GABAPENTIN [Concomitant]
     Active Substance: GABAPENTIN
     Indication: Product used for unknown indication
     Dosage: UNK
     Route: 065

REACTIONS (6)
  - Malaise [Unknown]
  - Hypoaesthesia [Unknown]
  - Paraesthesia [Unknown]
  - Impaired quality of life [Unknown]
  - Drug ineffective [Unknown]
  - Pain [Unknown]
